FAERS Safety Report 19832489 (Version 5)
Quarter: 2025Q2

REPORT INFORMATION
  Report Type: Report from Study
  Country: FR (occurrence: FR)
  Receive Date: 20210914
  Receipt Date: 20250627
  Transmission Date: 20250716
  Serious: Yes (Hospitalization)
  Sender: TAKEDA
  Company Number: FR-TAKEDA-FR201945892

PATIENT
  Age: 69 Year
  Sex: Female

DRUGS (21)
  1. TEDUGLUTIDE [Suspect]
     Active Substance: TEDUGLUTIDE
     Indication: Short-bowel syndrome
     Dosage: 2.4 MILLIGRAM, QD
     Dates: start: 20190129, end: 202010
  2. TEDUGLUTIDE [Suspect]
     Active Substance: TEDUGLUTIDE
     Dosage: 2.4 MILLIGRAM, QD
     Dates: start: 20201023, end: 20201103
  3. TEDUGLUTIDE [Suspect]
     Active Substance: TEDUGLUTIDE
  4. TEDUGLUTIDE [Suspect]
     Active Substance: TEDUGLUTIDE
  5. ACETAMINOPHEN [Concomitant]
     Active Substance: ACETAMINOPHEN
     Indication: Prophylaxis
  6. Gluconate de Calcium Aguettant [Concomitant]
     Indication: Prophylaxis
     Dosage: UNK UNK, 2/WEEK
  7. Magnesium arrow [Concomitant]
     Indication: Prophylaxis
     Dosage: UNK UNK, 2/WEEK
  8. CERNEVIT [Concomitant]
     Active Substance: VITAMINS
     Indication: Prophylaxis
     Dosage: 1 INTERNATIONAL UNIT, 2/WEEK
  9. TAUROLIDINE [Concomitant]
     Active Substance: TAUROLIDINE
     Indication: Vascular device infection
     Dosage: UNK UNK, QD
     Dates: start: 20220401
  10. VANCOMYCIN [Concomitant]
     Active Substance: VANCOMYCIN
     Indication: Vascular device infection
     Dosage: UNK UNK, QD
     Dates: start: 20220316, end: 20220331
  11. LINEZOLID [Concomitant]
     Active Substance: LINEZOLID
     Indication: Vascular device infection
     Dosage: 600 MILLIGRAM, BID
     Dates: start: 20220321, end: 20220328
  12. DAPTOMYCIN [Concomitant]
     Active Substance: DAPTOMYCIN
     Indication: Vascular device infection
     Dosage: UNK UNK, QD
     Dates: start: 20220316, end: 20220320
  13. Selexid [Concomitant]
     Indication: Urinary tract infection
     Dosage: 200 MILLIGRAM, BID
     Dates: start: 20221027, end: 20221102
  14. CEFIXIME [Concomitant]
     Active Substance: CEFIXIME
     Indication: Urinary tract infection
     Dates: start: 20220728, end: 20221026
  15. CIPROFLOXACIN [Concomitant]
     Active Substance: CIPROFLOXACIN
     Indication: Haematuria
     Dosage: UNK UNK, SINGLE
     Dates: start: 20220620
  16. LEVOTHYROXINE [Concomitant]
     Active Substance: LEVOTHYROXINE
     Indication: Prophylaxis
     Dosage: 35 GTT DROPS, QD
  17. CHOLECALCIFEROL [Concomitant]
     Active Substance: CHOLECALCIFEROL
     Indication: Prophylaxis
     Dosage: UNK UNK, 1/WEEK
  18. CALCIUM\CHOLECALCIFEROL [Concomitant]
     Active Substance: CALCIUM\CHOLECALCIFEROL
     Indication: Prophylaxis
  19. SODIUM CHLORIDE [Concomitant]
     Active Substance: SODIUM CHLORIDE
     Indication: Prophylaxis
  20. IRON\MINERALS\POTASSIUM IOD\SODIUM FLUORIDE\SODIUM MOLYBDATE\SODIUM SE [Concomitant]
     Active Substance: IRON\MINERALS\POTASSIUM IOD\SODIUM FLUORIDE\SODIUM MOLYBDATE\SODIUM SELENITE\ZINC
     Indication: Prophylaxis
  21. MAGNESIUM [Concomitant]
     Active Substance: MAGNESIUM
     Indication: Prophylaxis

REACTIONS (2)
  - Dehydration [Recovered/Resolved]
  - Viral infection [Recovered/Resolved]

NARRATIVE: CASE EVENT DATE: 20190705
